FAERS Safety Report 19417741 (Version 2)
Quarter: 2021Q2

REPORT INFORMATION
  Report Type: Spontaneous
  Country: US (occurrence: US)
  Receive Date: 20210615
  Receipt Date: 20210618
  Transmission Date: 20210717
  Serious: Yes (Other)
  Sender: FDA-Public Use
  Company Number: ALC2021US003659

PATIENT
  Age: 74 Year
  Sex: Female

DRUGS (3)
  1. POVIDONE?IODINE. [Suspect]
     Active Substance: POVIDONE-IODINE
     Indication: PRODUCT USED FOR UNKNOWN INDICATION
     Dosage: EYELID SCRUBS AND TOPICAL PVI TO THE CONJUNCTIVA FORNIX.
     Route: 061
  2. LIDOCAINE. [Suspect]
     Active Substance: LIDOCAINE
     Indication: PRODUCT USED FOR UNKNOWN INDICATION
     Dosage: INFEROTEMPORAL SUBCONJUNCTIVAL
     Route: 057
  3. AFLIBERCEPT [Suspect]
     Active Substance: AFLIBERCEPT
     Indication: SUBRETINAL FLUID
     Dosage: UNK
     Route: 031

REACTIONS (7)
  - Hypopyon [Recovering/Resolving]
  - Endophthalmitis [Recovering/Resolving]
  - Eye pain [Recovering/Resolving]
  - Ocular hyperaemia [Recovering/Resolving]
  - Visual impairment [Recovering/Resolving]
  - Eye haemorrhage [Recovering/Resolving]
  - Vitritis [Recovering/Resolving]
